FAERS Safety Report 5705408-X (Version None)
Quarter: 2008Q2

REPORT INFORMATION
  Report Type: 
  Country: None (occurrence: None)
  Receive Date: 20080415
  Receipt Date: 20080404
  Transmission Date: 20081010
  Serious: Yes (Hospitalization)
  Sender: FDA-Public Use
  Company Number: FR-BRISTOL-MYERS SQUIBB COMPANY-14148217

PATIENT
  Age: 47 Year
  Sex: Female

DRUGS (2)
  1. HOLOXAN [Suspect]
  2. ETOPOSIDE [Concomitant]

REACTIONS (1)
  - ENCEPHALOPATHY [None]
